FAERS Safety Report 9649390 (Version 1)
Quarter: 2013Q4

REPORT INFORMATION
  Report Type: Spontaneous
  Country: US (occurrence: None)
  Receive Date: 20131018
  Receipt Date: 20131018
  Transmission Date: 20140711
  Serious: No
  Sender: FDA-Public Use
  Company Number: AEGR000115

PATIENT
  Age: 57 Year
  Sex: Female

DRUGS (2)
  1. JUXTAPID [Suspect]
     Indication: HYPERLIPIDAEMIA
     Route: 048
     Dates: start: 20130722, end: 20130725
  2. TOPAMAX (TOPAMAX) [Concomitant]

REACTIONS (2)
  - Diarrhoea [None]
  - Weight decreased [None]
